FAERS Safety Report 9995643 (Version 1)
Quarter: 2014Q1

REPORT INFORMATION
  Report Type: Spontaneous
  Country: NL (occurrence: None)
  Receive Date: 20140307
  Receipt Date: 20140307
  Transmission Date: 20141002
  Serious: Yes (Hospitalization)
  Sender: FDA-Public Use
  Company Number: 7271345

PATIENT
  Age: 47 Year
  Sex: Female

DRUGS (2)
  1. LEVOTHYROXINE [Suspect]
     Indication: HYPOTHYROIDISM
     Route: 048
  2. FERRIC CARBOXYMALTOSE [Suspect]
     Indication: ANAEMIA
     Route: 042

REACTIONS (5)
  - Hypophosphataemia [None]
  - Hypothyroidism [None]
  - Condition aggravated [None]
  - Depression [None]
  - Vitamin D deficiency [None]
